FAERS Safety Report 4861295-3 (Version None)
Quarter: 2005Q4

REPORT INFORMATION
  Report Type: 
  Country: None (occurrence: None)
  Receive Date: 20051220
  Receipt Date: 20030528
  Transmission Date: 20060501
  Serious: Yes (Hospitalization, Disabling)
  Sender: FDA-Public Use
  Company Number: US-MERCK-0305USA02888

PATIENT
  Age: 41 Year
  Sex: Male
  Weight: 80 kg

DRUGS (9)
  1. VIOXX [Suspect]
     Indication: GOUT
     Route: 048
  2. VIOXX [Suspect]
     Route: 048
     Dates: start: 20001218, end: 20010130
  3. VIOXX [Suspect]
     Route: 048
     Dates: start: 20010131, end: 20010523
  4. VIOXX [Suspect]
     Indication: ARTHRITIS
     Route: 048
  5. VIOXX [Suspect]
     Route: 048
     Dates: start: 20001218, end: 20010130
  6. VIOXX [Suspect]
     Route: 048
     Dates: start: 20010131, end: 20010523
  7. VICODIN [Concomitant]
     Route: 065
  8. RELAFEN [Concomitant]
     Route: 065
     Dates: start: 20010328
  9. HYDROCODONE BITARTRATE [Concomitant]
     Route: 065

REACTIONS (45)
  - ACUTE MYOCARDIAL INFARCTION [None]
  - ADJUSTMENT DISORDER WITH MIXED ANXIETY AND DEPRESSED MOOD [None]
  - ANXIETY [None]
  - ARTERIOSCLEROSIS CORONARY ARTERY [None]
  - ARTHRALGIA [None]
  - BACK PAIN [None]
  - BLOOD PRESSURE INCREASED [None]
  - BLOOD TRIGLYCERIDES INCREASED [None]
  - BONE PAIN [None]
  - BREAST PAIN [None]
  - CHEST PAIN [None]
  - CHONDROMALACIA [None]
  - CONTUSION [None]
  - DEPRESSION [None]
  - DIZZINESS [None]
  - DRUG HYPERSENSITIVITY [None]
  - DYSPEPSIA [None]
  - EMOTIONAL DISTRESS [None]
  - EXTRASYSTOLES [None]
  - FATIGUE [None]
  - GASTROOESOPHAGEAL REFLUX DISEASE [None]
  - GROIN PAIN [None]
  - HEART RATE IRREGULAR [None]
  - HYPERSENSITIVITY [None]
  - HYPOTENSION [None]
  - JOINT SPRAIN [None]
  - KERATOACANTHOMA [None]
  - KYPHOSIS [None]
  - MICTURITION URGENCY [None]
  - MITRAL VALVE INCOMPETENCE [None]
  - MUSCULOSKELETAL STIFFNESS [None]
  - NASOPHARYNGITIS [None]
  - PAIN IN EXTREMITY [None]
  - PALPITATIONS [None]
  - PARAESTHESIA [None]
  - PERICARDITIS [None]
  - PNEUMONIA [None]
  - PNEUMONIA CHLAMYDIAL [None]
  - POLLAKIURIA [None]
  - PROSTATIC DISORDER [None]
  - PROSTATITIS [None]
  - TENSION HEADACHE [None]
  - TRICUSPID VALVE INCOMPETENCE [None]
  - UPPER RESPIRATORY TRACT INFECTION [None]
  - WOUND [None]
